FAERS Safety Report 6108791-9 (Version None)
Quarter: 2009Q1

REPORT INFORMATION
  Report Type: 
  Country: None (occurrence: None)
  Receive Date: 20090310
  Receipt Date: 20090302
  Transmission Date: 20090719
  Serious: Yes (Other)
  Sender: FDA-Public Use
  Company Number: US-JNJFOC-20090300963

PATIENT
  Sex: Female
  Weight: 90.72 kg

DRUGS (6)
  1. RISPERDAL CONSTA [Suspect]
     Indication: NERVOUS SYSTEM DISORDER
     Route: 030
  2. DIOVAN [Concomitant]
     Route: 065
  3. AMARIL [Concomitant]
     Indication: DIABETES MELLITUS
     Route: 065
  4. GLIPIZIDE [Concomitant]
     Route: 065
  5. PAXIL [Concomitant]
     Route: 065
  6. CYMBALTA [Concomitant]
     Route: 065

REACTIONS (2)
  - HEADACHE [None]
  - WITHDRAWAL SYNDROME [None]
